FAERS Safety Report 19736077 (Version 2)
Quarter: 2021Q3

REPORT INFORMATION
  Report Type: Spontaneous
  Country: CN (occurrence: CN)
  Receive Date: 20210823
  Receipt Date: 20210903
  Transmission Date: 20211014
  Serious: Yes (Other)
  Sender: FDA-Public Use
  Company Number: CN-PFIZER INC-202101050333

PATIENT
  Age: 7 Year
  Sex: Female
  Weight: 21 kg

DRUGS (5)
  1. SODIUM CHLORIDE. [Concomitant]
     Active Substance: SODIUM CHLORIDE
     Indication: VEHICLE SOLUTION USE
     Dosage: 250 ML, DAILY
     Route: 041
     Dates: start: 20210610, end: 20210612
  2. CYTARABINE. [Suspect]
     Active Substance: CYTARABINE
     Indication: ACUTE MYELOMONOCYTIC LEUKAEMIA
     Dosage: 85 MG, 2X/DAY
     Route: 041
     Dates: start: 20210610, end: 20210614
  3. ETOPOSIDE. [Suspect]
     Active Substance: ETOPOSIDE
     Indication: ACUTE MYELOMONOCYTIC LEUKAEMIA
     Dosage: 85 MG, 1X/DAY
     Route: 041
     Dates: start: 20210610, end: 20210612
  4. PHARMORUBICIN [Suspect]
     Active Substance: EPIRUBICIN
     Indication: ACUTE MYELOMONOCYTIC LEUKAEMIA
     Dosage: 40 MG, 1X/DAY
     Route: 041
     Dates: start: 20210610, end: 20210612
  5. SODIUM CHLORIDE. [Concomitant]
     Active Substance: SODIUM CHLORIDE
     Dosage: 50 ML, 2X/DAY
     Route: 041
     Dates: start: 20210610, end: 20210614

REACTIONS (1)
  - Hepatic function abnormal [Recovered/Resolved]

NARRATIVE: CASE EVENT DATE: 20210614
